FAERS Safety Report 5676694-X (Version None)
Quarter: 2008Q1

REPORT INFORMATION
  Report Type: 
  Country: None (occurrence: None)
  Receive Date: 20080321
  Receipt Date: 20080321
  Transmission Date: 20080703
  Serious: Yes (Other)
  Sender: FDA-Public Use
  Company Number: None

PATIENT
  Age: 52 Year
  Sex: Male
  Weight: 96.4 kg

DRUGS (6)
  1. CARBIDOPA/LEVADOPA 25/100 PUREPAC/ACTAVIS [Suspect]
     Indication: PARKINSON'S DISEASE
     Dosage: 2.5 TABLETS EVERY 110 MINUTES PO COUPLE OF WEEKS
     Route: 048
  2. CARBIDOPA/LEVADOPA 25/100 PUREPAC/ACTAVIS [Suspect]
  3. MIRTAZAPINE [Concomitant]
  4. FOLAMIN [Concomitant]
  5. OMEPRAZOLE [Concomitant]
  6. MIRAPEX [Concomitant]

REACTIONS (5)
  - DRUG EFFECT INCREASED [None]
  - DRUG INEFFECTIVE [None]
  - FEELING ABNORMAL [None]
  - PHARMACEUTICAL PRODUCT COMPLAINT [None]
  - THERAPEUTIC RESPONSE UNEXPECTED WITH DRUG SUBSTITUTION [None]
